FAERS Safety Report 12896581 (Version 1)
Quarter: 2016Q4

REPORT INFORMATION
  Report Type: Spontaneous
  Country: US (occurrence: US)
  Receive Date: 20161028
  Receipt Date: 20161028
  Transmission Date: 20170207
  Serious: Yes (Other)
  Sender: FDA-Public Use
  Company Number: None

PATIENT
  Age: 39 Year
  Sex: Female
  Weight: 67.05 kg

DRUGS (7)
  1. EMERGEN-C DIETARY SUPPLEMENT [Concomitant]
  2. NASONEX [Concomitant]
     Active Substance: MOMETASONE FUROATE
  3. VITAMIN C [Concomitant]
     Active Substance: ASCORBIC ACID
  4. SYNTHROID [Concomitant]
     Active Substance: LEVOTHYROXINE SODIUM
  5. VICKS DAYQUIL [Concomitant]
     Active Substance: DEXTROMETHORPHAN HYDROBROMIDE\GUAIFENESIN
  6. VALACYCLOVIR [Suspect]
     Active Substance: VALACYCLOVIR HYDROCHLORIDE
     Indication: HERPES VIRUS INFECTION
     Dosage: ?          QUANTITY:30 TABLET(S);?
     Route: 048
     Dates: start: 20161017, end: 20161024
  7. TYLENOL [Concomitant]
     Active Substance: ACETAMINOPHEN

REACTIONS (19)
  - Mydriasis [None]
  - Fibrin D dimer increased [None]
  - Tremor [None]
  - Disorientation [None]
  - Muscle tightness [None]
  - Confusional state [None]
  - Chest discomfort [None]
  - Blood pressure abnormal [None]
  - Dizziness [None]
  - Hypoaesthesia [None]
  - Visual impairment [None]
  - Vision blurred [None]
  - Pallor [None]
  - Dyspnoea [None]
  - Fatigue [None]
  - Heart rate increased [None]
  - Blood pressure increased [None]
  - Palpitations [None]
  - Asthenia [None]

NARRATIVE: CASE EVENT DATE: 20161020
